FAERS Safety Report 7987791-8 (Version None)
Quarter: 2011Q4

REPORT INFORMATION
  Report Type: 
  Country: None (occurrence: None)
  Receive Date: 20111216
  Receipt Date: 20111130
  Transmission Date: 20120403
  Serious: Yes (Hospitalization)
  Sender: FDA-Public Use
  Company Number: US-UCBSA-047122

PATIENT
  Age: 41 Year
  Sex: Female

DRUGS (15)
  1. XYREM [Suspect]
     Dosage: NIGHTLY
     Route: 048
     Dates: start: 20111126
  2. LEVOTHYROXINE SODIUM [Concomitant]
  3. XYREM [Suspect]
     Indication: NARCOLEPSY
     Dosage: UNKNOWN DOSE-NIGHTLY
     Route: 048
     Dates: start: 20080301
  4. PROZAC [Suspect]
     Route: 048
     Dates: start: 20111001, end: 20111101
  5. XYREM [Suspect]
     Dosage: NIGHTLY
     Route: 048
     Dates: start: 20111126
  6. XYREM [Suspect]
     Indication: SOMNOLENCE
     Dosage: UNKNOWN DOSE-NIGHTLY
     Route: 048
     Dates: start: 20080301
  7. LEUPROLIDE ACETATE [Concomitant]
  8. ESZOPICLONE [Concomitant]
  9. PROZAC [Suspect]
     Dosage: LOWERED TO UNKNOWN DOSE
     Route: 048
     Dates: start: 20111101, end: 20111101
  10. XYREM [Suspect]
     Dosage: NIGHTLY
     Route: 048
     Dates: end: 20111123
  11. XYREM [Suspect]
     Dosage: NIGHTLY
     Route: 048
     Dates: end: 20111123
  12. CABERGOLINE [Concomitant]
  13. NORETHINDRONE ACETATE [Concomitant]
  14. PROZAC [Suspect]
     Indication: DEPRESSION
     Route: 048
     Dates: start: 20110901, end: 20111001
  15. KEPPRA [Suspect]
     Dates: start: 20111101

REACTIONS (4)
  - MALAISE [None]
  - DEPRESSION [None]
  - CONVULSION [None]
  - ANXIETY [None]
